FAERS Safety Report 7199591-X (Version None)
Quarter: 2010Q4

REPORT INFORMATION
  Report Type: 
  Country: None (occurrence: None)
  Receive Date: 20101228
  Receipt Date: 20101216
  Transmission Date: 20110411
  Serious: Yes (Hospitalization, Other)
  Sender: FDA-Public Use
  Company Number: US-SANOFI-AVENTIS-2010SA077107

PATIENT
  Age: 90 Year
  Sex: Female

DRUGS (10)
  1. PLAVIX [Suspect]
     Route: 048
     Dates: start: 20060101, end: 20100101
  2. PLAVIX [Suspect]
     Route: 048
     Dates: start: 20100101
  3. PLETAL [Concomitant]
  4. ACETYLSALICYLIC ACID [Concomitant]
  5. METFORMIN [Concomitant]
  6. PREVACID [Concomitant]
  7. COZAAR [Concomitant]
  8. ATENOLOL [Concomitant]
  9. ZOCOR [Concomitant]
  10. DETROL [Concomitant]

REACTIONS (7)
  - ASTHMA [None]
  - CONSTIPATION [None]
  - DIARRHOEA [None]
  - DYSPNOEA [None]
  - EYE HAEMORRHAGE [None]
  - GASTROINTESTINAL HAEMORRHAGE [None]
  - HAEMATURIA [None]
